FAERS Safety Report 22190682 (Version 1)
Quarter: 2023Q2

REPORT INFORMATION
  Report Type: Spontaneous
  Country: US (occurrence: None)
  Receive Date: 20230410
  Receipt Date: 20230410
  Transmission Date: 20230721
  Serious: No
  Sender: FDA-Public Use
  Company Number: 2023A061007

PATIENT
  Age: 26734 Day
  Sex: Female
  Weight: 77.1 kg

DRUGS (1)
  1. PULMICORT TURBUHALER [Suspect]
     Active Substance: BUDESONIDE
     Indication: Bronchial hyperreactivity
     Route: 055

REACTIONS (8)
  - COVID-19 [Recovered/Resolved with Sequelae]
  - Pneumonia [Not Recovered/Not Resolved]
  - Sinusitis [Recovered/Resolved with Sequelae]
  - Headache [Unknown]
  - Cough [Not Recovered/Not Resolved]
  - Product prescribing issue [Unknown]
  - Product prescribing issue [Unknown]
  - Expired product administered [Unknown]

NARRATIVE: CASE EVENT DATE: 20230215
